FAERS Safety Report 8401190-6 (Version None)
Quarter: 2012Q2

REPORT INFORMATION
  Report Type: 
  Country: None (occurrence: None)
  Receive Date: 20120530
  Receipt Date: 20120530
  Transmission Date: 20120825
  Serious: Yes (Other)
  Sender: FDA-Public Use
  Company Number: None

PATIENT
  Age: 69 Year
  Sex: Female
  Weight: 63.5036 kg

DRUGS (2)
  1. CLOTRIMAZOLE [Suspect]
     Indication: SKIN ULCER
     Dosage: THIN LAYER X2 DAY
     Dates: start: 20120509, end: 20120526
  2. CLOTRIMAZOLE [Suspect]
     Indication: SKIN ULCER
     Dosage: THIN LAYER X2 DAY
     Dates: start: 20120526, end: 20120526

REACTIONS (9)
  - INSOMNIA [None]
  - PRODUCT SUBSTITUTION ISSUE [None]
  - APPLICATION SITE PRURITUS [None]
  - APPLICATION SITE URTICARIA [None]
  - INCREASED UPPER AIRWAY SECRETION [None]
  - COUGH [None]
  - APPLICATION SITE ULCER [None]
  - DYSPHAGIA [None]
  - PRODUCT QUALITY ISSUE [None]
